FAERS Safety Report 7961430-4 (Version None)
Quarter: 2011Q4

REPORT INFORMATION
  Report Type: 
  Country: None (occurrence: None)
  Receive Date: 20111202
  Receipt Date: 20111124
  Transmission Date: 20120403
  Serious: Yes (Death, Hospitalization)
  Sender: FDA-Public Use
  Company Number: FR-ACCORD-011353

PATIENT

DRUGS (4)
  1. LEVOTHYROXINE SODIUM [Concomitant]
  2. PAROXETINE HCL [Concomitant]
  3. CARBOPLATIN [Suspect]
     Indication: MALIGNANT PERITONEAL NEOPLASM
     Dosage: 360.00 MG/M2
  4. PACLITAXEL [Suspect]
     Indication: MALIGNANT PERITONEAL NEOPLASM
     Dosage: 175.00 MG/M2

REACTIONS (24)
  - RENAL IMPAIRMENT [None]
  - NEUROTOXICITY [None]
  - CONFUSIONAL STATE [None]
  - HYPOTHERMIA [None]
  - OFF LABEL USE [None]
  - DYSPNOEA [None]
  - HYPOTENSION [None]
  - HEPATIC FAILURE [None]
  - GLYCOLYSIS INCREASED [None]
  - ABDOMINAL PAIN [None]
  - BONE MARROW FAILURE [None]
  - MITOCHONDRIAL CYTOPATHY [None]
  - TOXICITY TO VARIOUS AGENTS [None]
  - ASCITES [None]
  - MITOCHONDRIAL DNA DELETION [None]
  - LACTIC ACIDOSIS [None]
  - MITOCHONDRIAL TOXICITY [None]
  - RENAL FAILURE ACUTE [None]
  - RESPIRATORY DISORDER [None]
  - MULTI-ORGAN FAILURE [None]
  - ASTHENIA [None]
  - FLUID RETENTION [None]
  - TACHYPNOEA [None]
  - TACHYCARDIA [None]
